FAERS Safety Report 19365255 (Version 1)
Quarter: 2021Q2

REPORT INFORMATION
  Report Type: Spontaneous
  Country: US (occurrence: US)
  Receive Date: 20210603
  Receipt Date: 20210603
  Transmission Date: 20210717
  Serious: No
  Sender: FDA-Public Use
  Company Number: None

PATIENT
  Age: 59 Year
  Sex: Female

DRUGS (1)
  1. ENBREL [Suspect]
     Active Substance: ETANERCEPT
     Route: 058
     Dates: start: 202010

REACTIONS (3)
  - Lower gastrointestinal haemorrhage [None]
  - Oxygen saturation decreased [None]
  - SARS-CoV-2 antibody test positive [None]

NARRATIVE: CASE EVENT DATE: 20210415
